FAERS Safety Report 5081242-1 (Version None)
Quarter: 2006Q3

REPORT INFORMATION
  Report Type: 
  Country: None (occurrence: None)
  Receive Date: 20060816
  Receipt Date: 20060214
  Transmission Date: 20061208
  Serious: Yes (Other)
  Sender: FDA-Public Use
  Company Number: DEWYE393414FEB06

PATIENT
  Sex: Female
  Weight: 85 kg

DRUGS (4)
  1. ENBREL [Suspect]
     Indication: RHEUMATOID ARTHRITIS
     Route: 058
     Dates: start: 20051125, end: 20060117
  2. PREDNISOLONE [Concomitant]
     Route: 048
  3. MELOXICAM [Concomitant]
     Route: 048
  4. ARAVA [Concomitant]
     Route: 048
     Dates: start: 20041101, end: 20051201

REACTIONS (1)
  - COLITIS COLLAGENOUS [None]
